FAERS Safety Report 5236498-9 (Version None)
Quarter: 2007Q1

REPORT INFORMATION
  Report Type: 
  Country: None (occurrence: None)
  Receive Date: 20061208
  Receipt Date: 20060612
  Transmission Date: 20070707
  Serious: Yes (Other)
  Sender: FDA-Public Use
  Company Number: 2006UW12489

PATIENT
  Age: 70 Year
  Sex: Female
  Weight: 54.431 kg

DRUGS (11)
  1. CRESTOR [Suspect]
     Indication: BLOOD CHOLESTEROL INCREASED
     Dosage: 10 MG PO
     Route: 048
  2. ATENOLOL [Concomitant]
  3. CLONIDINE [Concomitant]
  4. PRADIX [Concomitant]
  5. NORVASC [Concomitant]
  6. SYNTHROID [Concomitant]
  7. ZETIA [Concomitant]
  8. AVAPRO [Concomitant]
  9. FOLGARD [Concomitant]
  10. FOSAMAX [Concomitant]
  11. ASPIRIN [Concomitant]

REACTIONS (1)
  - THERAPEUTIC RESPONSE UNEXPECTED [None]
